FAERS Safety Report 4806278-4 (Version None)
Quarter: 2005Q4

REPORT INFORMATION
  Report Type: 
  Country: None (occurrence: None)
  Receive Date: 20051021
  Receipt Date: 20051012
  Transmission Date: 20060501
  Serious: Yes (Congenital Anomaly)
  Sender: FDA-Public Use
  Company Number: FR-ABBOTT-05P-056-0313552-00

PATIENT
  Sex: Male
  Weight: 2.2 kg

DRUGS (1)
  1. DEPAKENE [Suspect]
     Indication: DRUG EXPOSURE DURING PREGNANCY

REACTIONS (17)
  - BREAST MALFORMATION [None]
  - CAMPTODACTYLY CONGENITAL [None]
  - CEREBELLAR HYPOPLASIA [None]
  - CLINODACTYLY [None]
  - CONGENITAL ANOMALY [None]
  - CONGENITAL EYELID MALFORMATION [None]
  - CONGENITAL HAND MALFORMATION [None]
  - CONGENITAL HEARING DISORDER [None]
  - CRYPTORCHISM [None]
  - DYSPHONIA [None]
  - EAR MALFORMATION [None]
  - FACIAL DYSMORPHISM [None]
  - HYPERTELORISM OF ORBIT [None]
  - HYPOTONIA NEONATAL [None]
  - NECK DEFORMITY [None]
  - POOR SUCKING REFLEX [None]
  - TREMOR [None]
